FAERS Safety Report 14066692 (Version 1)
Quarter: 2017Q4

REPORT INFORMATION
  Report Type: Spontaneous
  Country: US (occurrence: US)
  Receive Date: 20171009
  Receipt Date: 20171009
  Transmission Date: 20180321
  Serious: Yes (Other)
  Sender: FDA-Public Use
  Company Number: US-PFIZER INC-2017430214

PATIENT

DRUGS (1)
  1. NEURONTIN [Suspect]
     Active Substance: GABAPENTIN
     Indication: NERVE INJURY
     Dosage: 1200 MG, UNK

REACTIONS (5)
  - Fall [Unknown]
  - Fatigue [Unknown]
  - Foot fracture [Unknown]
  - Insomnia [Unknown]
  - Anxiety [Unknown]
